FAERS Safety Report 7481829-2 (Version None)
Quarter: 2011Q2

REPORT INFORMATION
  Report Type: 
  Country: None (occurrence: None)
  Receive Date: 20110516
  Receipt Date: 20110502
  Transmission Date: 20111010
  Serious: Yes (Hospitalization)
  Sender: FDA-Public Use
  Company Number: AT-JNJFOC-20110501423

PATIENT
  Sex: Female
  Weight: 83.3 kg

DRUGS (11)
  1. DEANXIT [Concomitant]
     Indication: DEPRESSION
     Dates: end: 20100627
  2. REMICADE [Suspect]
     Indication: COLITIS ULCERATIVE
     Route: 042
  3. FERRETAB [Concomitant]
     Indication: IRON DEFICIENCY
  4. RAMIPRIL [Concomitant]
     Indication: HYPERTENSION
     Route: 048
  5. TRAMAL RETARD [Concomitant]
  6. CO-ENAC [Concomitant]
     Indication: HYPERTENSION
     Route: 048
  7. OMEC [Concomitant]
     Indication: HYPERTENSION
     Route: 048
  8. IMMUNOPRIN [Concomitant]
     Indication: COLITIS ULCERATIVE
     Dosage: FREQUENCY: ^1/0/1^
     Route: 048
  9. CAL-D-VITA [Concomitant]
     Indication: COLITIS ULCERATIVE
  10. BISOPROLOL FUMARATE [Concomitant]
     Indication: HYPERTENSION
     Route: 048
  11. STANGYL [Concomitant]

REACTIONS (1)
  - DEPRESSION [None]
